FAERS Safety Report 8476076-1 (Version None)
Quarter: 2012Q2

REPORT INFORMATION
  Report Type: 
  Country: None (occurrence: None)
  Receive Date: 20120628
  Receipt Date: 20120615
  Transmission Date: 20120825
  Serious: Yes (Other)
  Sender: FDA-Public Use
  Company Number: US-ELI_LILLY_AND_COMPANY-US201206005261

PATIENT
  Sex: Female

DRUGS (2)
  1. PROZAC [Suspect]
  2. VISTARIL [Concomitant]

REACTIONS (4)
  - LOSS OF CONSCIOUSNESS [None]
  - MIGRAINE [None]
  - UNEVALUABLE EVENT [None]
  - ROAD TRAFFIC ACCIDENT [None]
